FAERS Safety Report 16908149 (Version 1)
Quarter: 2019Q4

REPORT INFORMATION
  Report Type: Spontaneous
  Country: US (occurrence: US)
  Receive Date: 20191010
  Receipt Date: 20191010
  Transmission Date: 20200122
  Serious: No
  Sender: FDA-Public Use
  Company Number: None

PATIENT
  Age: 41 Year
  Sex: Female
  Weight: 87.8 kg

DRUGS (12)
  1. SINGULAIR [Concomitant]
     Active Substance: MONTELUKAST SODIUM
  2. ATENOLOL 25 MG BID [Concomitant]
  3. HYDRALAZINE [Suspect]
     Active Substance: HYDRALAZINE HYDROCHLORIDE
     Indication: HYPERTENSION
     Dates: end: 20190318
  4. POTASSIUM CHLORIDE 20 MEQ [Concomitant]
  5. AMLODIPINE 10 MG [Concomitant]
     Active Substance: AMLODIPINE BESYLATE
  6. ATORVASTATIN 10 MG [Concomitant]
     Active Substance: ATORVASTATIN
  7. LISINOPRIL 40 MG BID [Concomitant]
  8. MEDROXYPROGESTERONE 10 MG [Concomitant]
     Active Substance: MEDROXYPROGESTERONE
  9. SPIRONOLACTONE 25 MG [Concomitant]
     Active Substance: SPIRONOLACTONE
  10. ASPIRIN 81 MG [Concomitant]
     Active Substance: ASPIRIN
  11. ZYRTEC [Concomitant]
     Active Substance: CETIRIZINE HYDROCHLORIDE
  12. CHLORTHALIDONE 25 MG [Concomitant]
     Active Substance: CHLORTHALIDONE

REACTIONS (1)
  - Headache [None]

NARRATIVE: CASE EVENT DATE: 20190319
